FAERS Safety Report 9663621 (Version 1)
Quarter: 2013Q4

REPORT INFORMATION
  Report Type: Spontaneous
  Country: US (occurrence: US)
  Receive Date: 20131101
  Receipt Date: 20131101
  Transmission Date: 20140711
  Serious: No
  Sender: FDA-Public Use
  Company Number: US-PFIZER INC-2013311722

PATIENT
  Age: 66 Year
  Sex: Female
  Weight: 112.2 kg

DRUGS (2)
  1. LYRICA [Suspect]
     Indication: FIBROMYALGIA
     Dosage: 150 MG, 2X/DAY
     Route: 048
  2. LYRICA [Suspect]
     Indication: DIABETIC NEUROPATHY

REACTIONS (4)
  - Drug dose omission [Unknown]
  - Fall [Unknown]
  - Joint swelling [Recovering/Resolving]
  - Arthralgia [Recovering/Resolving]
